FAERS Safety Report 4777616-6 (Version None)
Quarter: 2005Q3

REPORT INFORMATION
  Report Type: 
  Country: None (occurrence: None)
  Receive Date: 20050921
  Receipt Date: 20050902
  Transmission Date: 20060218
  Serious: Yes (Other)
  Sender: FDA-Public Use
  Company Number: USA0509107171

PATIENT
  Age: 69 Year
  Sex: Female
  Weight: 94 kg

DRUGS (1)
  1. HUMULIN N [Suspect]
     Dosage: 80 U DAY
     Dates: start: 19800101

REACTIONS (8)
  - BLINDNESS UNILATERAL [None]
  - BODY HEIGHT DECREASED [None]
  - CATARACT [None]
  - EYE HAEMORRHAGE [None]
  - EYE IRRITATION [None]
  - PHARMACEUTICAL PRODUCT COMPLAINT [None]
  - RETINAL TEAR [None]
  - VISUAL ACUITY REDUCED [None]
